FAERS Safety Report 4645110-9 (Version None)
Quarter: 2005Q2

REPORT INFORMATION
  Report Type: 
  Country: None (occurrence: None)
  Receive Date: 20050422
  Receipt Date: 20050413
  Transmission Date: 20051028
  Serious: Yes (Hospitalization)
  Sender: FDA-Public Use
  Company Number: 2005058446

PATIENT
  Age: 17 Year
  Sex: Male

DRUGS (1)
  1. DIPHENHYDRAMINE HCL [Suspect]
     Indication: SUICIDE ATTEMPT
     Dosage: 40 (50 MG) TABLETS ONCE, ORAL
     Route: 048

REACTIONS (13)
  - BODY TEMPERATURE INCREASED [None]
  - BUNDLE BRANCH BLOCK RIGHT [None]
  - ELECTROCARDIOGRAM QT PROLONGED [None]
  - GRAND MAL CONVULSION [None]
  - HYPOTENSION [None]
  - INTENTIONAL MISUSE [None]
  - METABOLIC ACIDOSIS [None]
  - MYDRIASIS [None]
  - PUPILLARY REFLEX IMPAIRED [None]
  - SUICIDE ATTEMPT [None]
  - TACHYCARDIA [None]
  - TACHYPNOEA [None]
  - UNRESPONSIVE TO VERBAL STIMULI [None]
